FAERS Safety Report 9806510 (Version 2)
Quarter: 2014Q1

REPORT INFORMATION
  Report Type: Spontaneous
  Country: US (occurrence: US)
  Receive Date: 20140109
  Receipt Date: 20140113
  Transmission Date: 20141002
  Serious: Yes (Death)
  Sender: FDA-Public Use
  Company Number: US-PFIZER INC-2014004920

PATIENT
  Age: 34 Year
  Sex: Female

DRUGS (4)
  1. OXYCODONE HYDROCHLORIDE [Suspect]
  2. METHADONE [Suspect]
  3. TRAZODONE [Suspect]
  4. DIPHENHYDRAMINE [Suspect]

REACTIONS (1)
  - Death [Fatal]
